FAERS Safety Report 23217965 (Version 1)
Quarter: 2023Q4

REPORT INFORMATION
  Report Type: Report from Study
  Country: CN (occurrence: CN)
  Receive Date: 20231122
  Receipt Date: 20231122
  Transmission Date: 20240110
  Serious: Yes (Hospitalization)
  Sender: FDA-Public Use
  Company Number: CN-Eisai-EC-2023-153202

PATIENT
  Age: 70 Year
  Sex: Male
  Weight: 67 kg

DRUGS (5)
  1. LENVATINIB [Suspect]
     Active Substance: LENVATINIB
     Indication: Hepatocellular carcinoma
     Route: 048
     Dates: start: 20210610, end: 20210716
  2. TORIPALIMAB [Suspect]
     Active Substance: TORIPALIMAB
     Indication: Hepatocellular carcinoma
     Dosage: BLINDED DOSE (240 MG OR PLACEBO)
     Route: 042
     Dates: start: 20210610, end: 20210701
  3. TORIPALIMAB [Suspect]
     Active Substance: TORIPALIMAB
     Dosage: BLINDED DOSE (240 MG OR PLACEBO)
     Route: 042
     Dates: start: 20210723
  4. ENTECAVIR [Concomitant]
     Active Substance: ENTECAVIR
     Indication: Chronic hepatitis B
     Dates: start: 20201215
  5. AMLODIPINE BESYLATE [Concomitant]
     Active Substance: AMLODIPINE BESYLATE
     Indication: Hypertension
     Dates: start: 20210615

REACTIONS (1)
  - Hypoalbuminaemia [Recovered/Resolved]

NARRATIVE: CASE EVENT DATE: 20210722
